FAERS Safety Report 12313987 (Version 1)
Quarter: 2016Q2

REPORT INFORMATION
  Report Type: Spontaneous
  Country: FR (occurrence: FR)
  Receive Date: 20160428
  Receipt Date: 20160428
  Transmission Date: 20160815
  Serious: Yes (Other)
  Sender: FDA-Public Use
  Company Number: FR-BAYER-2016-074426

PATIENT
  Age: 56 Year
  Sex: Male

DRUGS (1)
  1. NEXAVAR [Suspect]
     Active Substance: SORAFENIB
     Indication: HEPATOCELLULAR CARCINOMA
     Dosage: UNK

REACTIONS (5)
  - Acute coronary syndrome [None]
  - Myocardial infarction [None]
  - Gamma-glutamyltransferase increased [None]
  - Cardiac arrest [None]
  - Coronary artery occlusion [None]

NARRATIVE: CASE EVENT DATE: 2016
